FAERS Safety Report 16335242 (Version 2)
Quarter: 2019Q4

REPORT INFORMATION
  Report Type: Report from Study
  Country: None (occurrence: ES)
  Receive Date: 20190521
  Receipt Date: 20191119
  Transmission Date: 20200122
  Serious: Yes (Hospitalization, Other)
  Sender: FDA-Public Use
  Company Number: ES-ABBVIE-19S-144-2781801-00

PATIENT
  Age: 75 Year
  Sex: Female
  Weight: 73 kg

DRUGS (1)
  1. DUODOPA [Suspect]
     Active Substance: CARBIDOPA\LEVODOPA
     Indication: PARKINSON^S DISEASE
     Route: 050
     Dates: start: 20190509, end: 201905

REACTIONS (11)
  - Infusion site extravasation [Unknown]
  - Dyskinesia [Not Recovered/Not Resolved]
  - Gastrectomy [Unknown]
  - Wound secretion [Unknown]
  - Stoma site discharge [Unknown]
  - Stoma site pain [Recovering/Resolving]
  - Chemical peritonitis [Unknown]
  - Device connection issue [Unknown]
  - Peritonitis [Unknown]
  - Duodenal perforation [Unknown]
  - Pneumoperitoneum [Unknown]

NARRATIVE: CASE EVENT DATE: 2019
